FAERS Safety Report 12386893 (Version 1)
Quarter: 2016Q2

REPORT INFORMATION
  Report Type: Spontaneous
  Country: IT (occurrence: IT)
  Receive Date: 20160519
  Receipt Date: 20160519
  Transmission Date: 20160815
  Serious: Yes (Other)
  Sender: FDA-Public Use
  Company Number: IT-PFIZER INC-2016246986

PATIENT
  Age: 72 Year
  Sex: Female
  Weight: 58 kg

DRUGS (6)
  1. ZOFRAN [Concomitant]
     Active Substance: ONDANSETRON HYDROCHLORIDE
     Dosage: 8 MG, UNK
     Route: 042
  2. LESCOL [Concomitant]
     Active Substance: FLUVASTATIN SODIUM
     Dosage: 80 MG, UNK
     Route: 048
  3. CARBOPLATIN. [Suspect]
     Active Substance: CARBOPLATIN
     Indication: OVARIAN CANCER
     Dosage: 350 MG, CYCLIC
     Route: 042
     Dates: start: 20160127, end: 20160217
  4. PACLITAXEL. [Suspect]
     Active Substance: PACLITAXEL
     Indication: OVARIAN CANCER
     Dosage: 210 MG, CYCLIC
     Route: 042
     Dates: start: 20160127, end: 20160217
  5. GLICLAZIDE [Concomitant]
     Active Substance: GLICLAZIDE
     Dosage: 1 DF, UNK
     Route: 048
  6. DECADRON [Concomitant]
     Active Substance: DEXAMETHASONE
     Dosage: 20 MG, UNK
     Route: 042

REACTIONS (6)
  - Hypersensitivity [Unknown]
  - Pruritus [Recovered/Resolved]
  - Heart rate increased [Unknown]
  - Chest pain [Recovered/Resolved]
  - Hypertension [Unknown]
  - Cough [Recovered/Resolved]

NARRATIVE: CASE EVENT DATE: 20160217
